FAERS Safety Report 9471305 (Version 2)
Quarter: 2013Q3

REPORT INFORMATION
  Report Type: Spontaneous
  Country: US (occurrence: US)
  Receive Date: 20130822
  Receipt Date: 20130930
  Transmission Date: 20140515
  Serious: Yes (Hospitalization)
  Sender: FDA-Public Use
  Company Number: US-PFIZER INC-2013241648

PATIENT
  Sex: 0

DRUGS (3)
  1. LIPITOR [Suspect]
     Dosage: UNK
  2. NITROSTAT [Suspect]
     Dosage: UNK
  3. ZOLOFT [Suspect]
     Dosage: UNK

REACTIONS (1)
  - Cardiac disorder [Unknown]
